FAERS Safety Report 16850284 (Version 1)
Quarter: 2019Q3

REPORT INFORMATION
  Report Type: Report from Study
  Country: US (occurrence: US)
  Receive Date: 20190925
  Receipt Date: 20190925
  Transmission Date: 20191005
  Serious: No
  Sender: FDA-Public Use
  Company Number: US-KYOWAKIRIN-2019BKK014829

PATIENT

DRUGS (2)
  1. CRYSVITA [Suspect]
     Active Substance: BUROSUMAB-TWZA
     Indication: PRODUCT USED FOR UNKNOWN INDICATION
     Dosage: 20 MG (1 INJECTION), 1X/4 WEEKS
     Route: 058
     Dates: start: 20180812
  2. CRYSVITA [Suspect]
     Active Substance: BUROSUMAB-TWZA
     Indication: PRODUCT USED FOR UNKNOWN INDICATION
     Dosage: 30 MG (2 INJECTION), 1X/4 WEEKS
     Route: 058
     Dates: start: 20180812

REACTIONS (1)
  - Blood phosphorus decreased [Not Recovered/Not Resolved]
